FAERS Safety Report 7844334-7 (Version None)
Quarter: 2011Q4

REPORT INFORMATION
  Report Type: 
  Country: None (occurrence: None)
  Receive Date: 20111014
  Receipt Date: 20111007
  Transmission Date: 20120403
  Serious: Yes (Death)
  Sender: FDA-Public Use
  Company Number: DSA_44682_2011

PATIENT
  Sex: Male

DRUGS (1)
  1. XENAZINE [Suspect]
     Indication: TORTICOLLIS
     Dosage: (12.5 MG TID ORAL)
     Route: 048
     Dates: start: 20101123, end: 20111006

REACTIONS (2)
  - DIZZINESS [None]
  - GAIT DISTURBANCE [None]
